FAERS Safety Report 8580195-9 (Version None)
Quarter: 2012Q3

REPORT INFORMATION
  Report Type: 
  Country: None (occurrence: None)
  Receive Date: 20120808
  Receipt Date: 20120730
  Transmission Date: 20120928
  Serious: Yes (Hospitalization)
  Sender: FDA-Public Use
  Company Number: JP-ALLERGAN-1210745US

PATIENT
  Age: 80 Year
  Sex: Female

DRUGS (1)
  1. LUMIGAN [Suspect]
     Indication: GLAUCOMA
     Dosage: UNK
     Route: 047
     Dates: start: 20120301

REACTIONS (3)
  - CORNEAL OEDEMA [None]
  - CORNEAL DEGENERATION [None]
  - CORNEAL EROSION [None]
